FAERS Safety Report 24033422 (Version 2)
Quarter: 2024Q3

REPORT INFORMATION
  Report Type: Spontaneous
  Country: SK (occurrence: SK)
  Receive Date: 20240701
  Receipt Date: 20240710
  Transmission Date: 20241017
  Serious: No
  Sender: ROCHE
  Company Number: SK-ROCHE-3374880

PATIENT
  Age: 30 Year
  Sex: Female

DRUGS (3)
  1. EVRYSDI [Suspect]
     Active Substance: RISDIPLAM
     Indication: Spinal muscular atrophy
     Route: 048
     Dates: start: 20230331
  2. EVRYSDI [Suspect]
     Active Substance: RISDIPLAM
     Dosage: REDUCED DOSE OF 4.5 MG/6 ML/ DAY
     Route: 048
     Dates: start: 20230608, end: 20230621
  3. EVRYSDI [Suspect]
     Active Substance: RISDIPLAM
     Route: 048
     Dates: start: 20230719

REACTIONS (11)
  - Malaise [Unknown]
  - Muscular weakness [Unknown]
  - Dyspnoea [Unknown]
  - Fatigue [Unknown]
  - Dysphagia [Unknown]
  - Temporomandibular pain and dysfunction syndrome [Unknown]
  - Decreased appetite [Unknown]
  - Apathy [Unknown]
  - Insomnia [Unknown]
  - Palatal swelling [Unknown]
  - Aphthous ulcer [Unknown]
